FAERS Safety Report 11723028 (Version 1)
Quarter: 2015Q4

REPORT INFORMATION
  Report Type: Spontaneous
  Country: GB (occurrence: GB)
  Receive Date: 20151111
  Receipt Date: 20151111
  Transmission Date: 20160304
  Serious: Yes (Hospitalization)
  Sender: FDA-Public Use
  Company Number: US-BRAINTREE LABORATORIES-150466

PATIENT
  Age: 61 Year
  Sex: Male

DRUGS (1)
  1. IZINOVA [Suspect]
     Active Substance: MAGNESIUM SULFATE\POTASSIUM SULFATE\SODIUM SULFATE
     Indication: COLONOSCOPY
     Dosage: UNK
     Route: 048
     Dates: start: 20151102, end: 20151102

REACTIONS (1)
  - Bradyarrhythmia [None]

NARRATIVE: CASE EVENT DATE: 20151103
